FAERS Safety Report 7183393-4 (Version None)
Quarter: 2010Q4

REPORT INFORMATION
  Report Type: 
  Country: None (occurrence: None)
  Receive Date: 20101220
  Receipt Date: 20101220
  Transmission Date: 20110411
  Serious: Yes (Hospitalization)
  Sender: FDA-Public Use
  Company Number: None

PATIENT
  Age: 61 Year
  Sex: Male
  Weight: 89.1 kg

DRUGS (10)
  1. WARFARIN SODIUM [Suspect]
     Indication: ATRIAL FIBRILLATION
     Dosage: PO CHRONIC
     Route: 048
  2. ALLOPURINOL [Suspect]
     Indication: GOUT
     Dosage: PO CHRONIC
     Route: 048
  3. SYNTHROID [Suspect]
  4. ZEMPLAR [Concomitant]
  5. PROTONIX [Concomitant]
  6. ALLOPURINOL [Concomitant]
  7. RIFAMPIN [Concomitant]
  8. M.V.I. [Concomitant]
  9. K+ [Concomitant]
  10. AMIODARONE [Concomitant]

REACTIONS (5)
  - ATRIAL FIBRILLATION [None]
  - HYPOPHAGIA [None]
  - INTERNATIONAL NORMALISED RATIO INCREASED [None]
  - MELAENA [None]
  - TREATMENT NONCOMPLIANCE [None]
